FAERS Safety Report 9238094 (Version 2)
Quarter: 2013Q2

REPORT INFORMATION
  Report Type: Spontaneous
  Country: US (occurrence: None)
  Receive Date: 20130415
  Receipt Date: 20130423
  Transmission Date: 20140414
  Serious: Yes (Hospitalization)
  Sender: FDA-Public Use
  Company Number: 2013-0602

PATIENT
  Age: 74 Year
  Sex: Male

DRUGS (15)
  1. KYPROLIS [Suspect]
     Indication: PLASMA CELL MYELOMA
     Dosage: (2 IN 1 WK), INTRAVENOUS?
     Route: 042
     Dates: start: 201303
  2. SOTALOL (SOTALOL) (SOTALOL) [Concomitant]
  3. LYRICA (PREGABALIN) (PREGABALIN) [Concomitant]
  4. AMLODIPINE (AMLODIPINE) [Concomitant]
  5. BENAZEPRIL AND HCTZ (HYDROCHLOROTHIAZIDE) (HYDROCHLOROTHIAZIDE) [Concomitant]
  6. WARFARIN (WARFARIN) (WARFARIN) [Concomitant]
  7. POTASSIUM SUPPLEMENT (POTASSIUM ) (POTASSIUM) [Concomitant]
  8. SODIUM BICARB (SODIUM BICARBONATE ) (SODIUM BICARBONATE) [Concomitant]
  9. VICODIN (PARACETAMOL) (PARACETAMOL) [Concomitant]
  10. FENOFIBRATE (FENOFIBRATE) (FEBOFIBRATE) [Concomitant]
  11. SENOLAX (SENNOSIDE A+B) (SENNOSDIE A+B) [Concomitant]
  12. CALCITROL (ERGOCALCIFEROL) (ERGOCALCIFEROL) [Concomitant]
  13. GLIPIZIDE ER (GLIPIZIDE) (GLIPIZIDE) [Concomitant]
  14. PRILOSEC (OMEPRAZOLE) (OMEPRAZOLE) [Concomitant]
  15. LASIX (FUROSEMIDE) (FUROSEMIDE) [Concomitant]

REACTIONS (7)
  - Localised infection [None]
  - Fluid retention [None]
  - Gait disturbance [None]
  - Fall [None]
  - Limb injury [None]
  - Limb injury [None]
  - Anaemia [None]
